FAERS Safety Report 13238576 (Version 2)
Quarter: 2017Q1

REPORT INFORMATION
  Report Type: Spontaneous
  Country: US (occurrence: US)
  Receive Date: 20170216
  Receipt Date: 20170217
  Transmission Date: 20170428
  Serious: No
  Sender: FDA-Public Use
  Company Number: US-ACTAVIS-2016-16353

PATIENT
  Sex: Female

DRUGS (1)
  1. PERMETHRIN (AMALLC) [Suspect]
     Active Substance: PERMETHRIN
     Indication: LICE INFESTATION
     Dosage: APPLY ONCE AND WAIT 7-14 DAYS AND REAPPLY
     Route: 061
     Dates: start: 20160715, end: 20160722

REACTIONS (2)
  - Incorrect product storage [Unknown]
  - Drug ineffective for unapproved indication [Not Recovered/Not Resolved]

NARRATIVE: CASE EVENT DATE: 20160722
